FAERS Safety Report 9224022 (Version 2)
Quarter: 2013Q2

REPORT INFORMATION
  Report Type: Spontaneous
  Country: US (occurrence: US)
  Receive Date: 20130411
  Receipt Date: 20130430
  Transmission Date: 20140414
  Serious: No
  Sender: FDA-Public Use
  Company Number: US-BIOGENIDEC-2013BI031435

PATIENT
  Sex: Female

DRUGS (2)
  1. TYSABRI [Suspect]
     Indication: MULTIPLE SCLEROSIS
     Route: 042
     Dates: start: 20101117
  2. AVONEX [Concomitant]
     Indication: MULTIPLE SCLEROSIS
     Route: 030
     Dates: start: 20090524

REACTIONS (6)
  - Vision blurred [Unknown]
  - Visual acuity reduced [Not Recovered/Not Resolved]
  - Feeling hot [Unknown]
  - Nausea [Unknown]
  - Multiple sclerosis [Unknown]
  - Dizziness [Unknown]
